FAERS Safety Report 7023915-7 (Version None)
Quarter: 2010Q4

REPORT INFORMATION
  Report Type: 
  Country: None (occurrence: None)
  Receive Date: 20101001
  Receipt Date: 20100922
  Transmission Date: 20110411
  Serious: Yes (Hospitalization)
  Sender: FDA-Public Use
  Company Number: NL-SANOFI-AVENTIS-2010SA051668

PATIENT
  Sex: Male

DRUGS (1)
  1. CLEXANE [Suspect]

REACTIONS (3)
  - DIARRHOEA [None]
  - EPILEPSY [None]
  - LOSS OF CONSCIOUSNESS [None]
